FAERS Safety Report 10097041 (Version 3)
Quarter: 2015Q3

REPORT INFORMATION
  Report Type: Spontaneous
  Country: US (occurrence: US)
  Receive Date: 20140422
  Receipt Date: 20150813
  Transmission Date: 20151125
  Serious: No
  Sender: FDA-Public Use
  Company Number: US-GILEAD-2012-0065699

PATIENT
  Age: 67 Year
  Sex: Female

DRUGS (4)
  1. LETAIRIS [Suspect]
     Active Substance: AMBRISENTAN
     Indication: CHRONIC OBSTRUCTIVE PULMONARY DISEASE
  2. LETAIRIS [Suspect]
     Active Substance: AMBRISENTAN
     Indication: HEPATIC CIRRHOSIS
  3. LETAIRIS [Suspect]
     Active Substance: AMBRISENTAN
     Indication: PULMONARY HYPERTENSION
     Route: 048
     Dates: start: 20120823, end: 20121130
  4. LETAIRIS [Suspect]
     Active Substance: AMBRISENTAN
     Indication: MYELODYSPLASTIC SYNDROME

REACTIONS (3)
  - Liver function test abnormal [Unknown]
  - Gastrointestinal disorder [Unknown]
  - Drug ineffective [Unknown]
